FAERS Safety Report 14337804 (Version 1)
Quarter: 2017Q4

REPORT INFORMATION
  Report Type: Spontaneous
  Country: ES (occurrence: ES)
  Receive Date: 20171229
  Receipt Date: 20171229
  Transmission Date: 20180321
  Serious: Yes (Other)
  Sender: FDA-Public Use
  Company Number: ES-JNJFOC-20171230383

PATIENT
  Age: 55 Year
  Sex: Male
  Weight: 75.6 kg

DRUGS (8)
  1. CLOTRIMAZOL [Concomitant]
     Active Substance: CLOTRIMAZOLE
     Dosage: 1 TUBE OF 30 G
     Route: 065
  2. RIVOTRIL [Concomitant]
     Active Substance: CLONAZEPAM
     Route: 065
     Dates: start: 20171025
  3. OMEPRAZOL CINFA [Concomitant]
     Dosage: 40 MG/12H
     Route: 048
     Dates: start: 20171025
  4. ACTIRA [Concomitant]
     Active Substance: MOXIFLOXACIN HYDROCHLORIDE
     Route: 065
  5. SYMBICORT [Concomitant]
     Active Substance: BUDESONIDE\FORMOTEROL FUMARATE DIHYDRATE
     Dosage: DOSE: 160 MICROGRAMS/4.5??MICROGRAMS/INHALATION SUSPENSION
     Route: 065
  6. VOKANAMET [Suspect]
     Active Substance: CANAGLIFLOZIN\METFORMIN HYDROCHLORIDE
     Indication: PRODUCT USED FOR UNKNOWN INDICATION
     Dosage: DOSE: 50 MG/850 MG
     Route: 048
     Dates: start: 20171025
  7. MUPIROCINA ISDIN [Concomitant]
     Route: 065
  8. SERTRALINA STADA [Concomitant]
     Route: 065
     Dates: start: 20171025

REACTIONS (1)
  - Diabetic ketoacidosis [Recovering/Resolving]
